FAERS Safety Report 23022366 (Version 1)
Quarter: 2023Q4

REPORT INFORMATION
  Report Type: Spontaneous
  Country: KR (occurrence: None)
  Receive Date: 20231003
  Receipt Date: 20231003
  Transmission Date: 20240110
  Serious: Yes (Other)
  Sender: FDA-Public Use
  Company Number: 2023A221508

PATIENT
  Sex: Female

DRUGS (10)
  1. DURVALUMAB [Suspect]
     Active Substance: DURVALUMAB
     Dates: start: 202304
  2. DURVALUMAB [Suspect]
     Active Substance: DURVALUMAB
     Dates: start: 202304
  3. DURVALUMAB [Suspect]
     Active Substance: DURVALUMAB
     Dates: start: 202305
  4. DURVALUMAB [Suspect]
     Active Substance: DURVALUMAB
     Dates: start: 202306
  5. DURVALUMAB [Suspect]
     Active Substance: DURVALUMAB
     Dates: start: 202306
  6. DURVALUMAB [Suspect]
     Active Substance: DURVALUMAB
     Dates: start: 202307
  7. DURVALUMAB [Suspect]
     Active Substance: DURVALUMAB
     Dates: start: 202308
  8. DURVALUMAB [Suspect]
     Active Substance: DURVALUMAB
     Dates: start: 202309
  9. GEMCITABINE [Suspect]
     Active Substance: GEMCITABINE
  10. CISPLATIN [Suspect]
     Active Substance: CISPLATIN

REACTIONS (1)
  - Carbohydrate antigen 19-9 increased [Unknown]
